FAERS Safety Report 4271266-6 (Version None)
Quarter: 2004Q1

REPORT INFORMATION
  Report Type: 
  Country: None (occurrence: None)
  Receive Date: 20040114
  Receipt Date: 20040114
  Transmission Date: 20041129
  Serious: No
  Sender: FDA-Public Use
  Company Number: None

PATIENT
  Age: 48 Year
  Sex: Male
  Weight: 83.9154 kg

DRUGS (2)
  1. NEURONTIN [Suspect]
     Indication: SCIATICA
     Dosage: 300 MG PO TID
     Route: 048
     Dates: start: 20031217, end: 20030105
  2. DICLOFENAC SODIUM [Concomitant]

REACTIONS (2)
  - DEAFNESS [None]
  - HEARING IMPAIRED [None]
